FAERS Safety Report 6162651-6 (Version None)
Quarter: 2009Q2

REPORT INFORMATION
  Report Type: 
  Country: None (occurrence: None)
  Receive Date: 20090421
  Receipt Date: 20080813
  Transmission Date: 20091009
  Serious: No
  Sender: FDA-Public Use
  Company Number: US-ASTRAZENECA-2008UW16474

PATIENT
  Age: 58 Year
  Sex: Male
  Weight: 104.8 kg

DRUGS (8)
  1. CASODEX [Suspect]
     Indication: PROSTATE CANCER
     Route: 048
  2. ZETIA [Concomitant]
  3. BENICAR [Concomitant]
  4. PRILOSEC [Concomitant]
  5. MULTI-VITAMIN [Concomitant]
  6. GARLIC [Concomitant]
  7. ASPIRIN [Concomitant]
  8. HYTRIN [Concomitant]

REACTIONS (7)
  - FLATULENCE [None]
  - FREQUENT BOWEL MOVEMENTS [None]
  - HOT FLUSH [None]
  - INFLUENZA LIKE ILLNESS [None]
  - MALAISE [None]
  - NAUSEA [None]
  - PAIN [None]
